FAERS Safety Report 7340971-7 (Version None)
Quarter: 2011Q1

REPORT INFORMATION
  Report Type: 
  Country: None (occurrence: None)
  Receive Date: 20110309
  Receipt Date: 20100329
  Transmission Date: 20110831
  Serious: No
  Sender: FDA-Public Use
  Company Number: US-ABBOTT-10P-163-0636304-00

PATIENT
  Sex: Female
  Weight: 113.5 kg

DRUGS (4)
  1. LUPRON DEPOT [Suspect]
     Indication: ENDOMETRIOSIS
     Route: 030
     Dates: start: 20091101
  2. AMBIEN [Concomitant]
     Indication: INSOMNIA
  3. LEXAPRO [Concomitant]
     Indication: DEPRESSION
  4. XANAX [Concomitant]
     Indication: PRODUCT USED FOR UNKNOWN INDICATION

REACTIONS (8)
  - DEPRESSION [None]
  - SOCIAL AVOIDANT BEHAVIOUR [None]
  - DIZZINESS [None]
  - WEIGHT INCREASED [None]
  - HYPOTHYROIDISM [None]
  - SYNCOPE [None]
  - INSOMNIA [None]
  - ANGER [None]
